FAERS Safety Report 23759944 (Version 1)
Quarter: 2024Q2

REPORT INFORMATION
  Report Type: Spontaneous
  Country: US (occurrence: US)
  Receive Date: 20240419
  Receipt Date: 20240419
  Transmission Date: 20240716
  Serious: Yes (Other)
  Sender: FDA-Public Use
  Company Number: US-SUN PHARMACEUTICAL INDUSTRIES LTD-2024R1-442085

PATIENT
  Age: 47 Year
  Sex: Male

DRUGS (4)
  1. ASPIRIN [Suspect]
     Active Substance: ASPIRIN
     Indication: Neurosarcoidosis
     Dosage: UNK
     Route: 065
  2. CLOPIDOGREL [Suspect]
     Active Substance: CLOPIDOGREL BISULFATE
     Indication: Neurosarcoidosis
     Dosage: UNK
     Route: 065
  3. METHYLPREDNISOLONE [Suspect]
     Active Substance: METHYLPREDNISOLONE
     Indication: Neurosarcoidosis
     Dosage: 1 GRAM, DAILY
     Route: 042
  4. INFLIXIMAB [Suspect]
     Active Substance: INFLIXIMAB
     Indication: Neurosarcoidosis
     Dosage: 5 MILLIGRAM/KILOGRAM
     Route: 065

REACTIONS (6)
  - Brain stem stroke [Unknown]
  - Central nervous system lesion [Unknown]
  - Metastases to meninges [Unknown]
  - Myelopathy [Unknown]
  - Pachymeningitis [Unknown]
  - Treatment failure [Unknown]
